FAERS Safety Report 25148965 (Version 1)
Quarter: 2025Q2

REPORT INFORMATION
  Report Type: Spontaneous
  Country: GB (occurrence: GB)
  Receive Date: 20250402
  Receipt Date: 20250402
  Transmission Date: 20250717
  Serious: Yes (Other)
  Sender: RANBAXY
  Company Number: GB-SUN PHARMACEUTICAL INDUSTRIES LTD-2025RR-501782

PATIENT
  Age: 33 Year
  Sex: Male
  Weight: 85 kg

DRUGS (1)
  1. FINGOLIMOD [Suspect]
     Active Substance: FINGOLIMOD
     Indication: Relapsing multiple sclerosis
     Route: 065
     Dates: start: 20200210

REACTIONS (1)
  - Cryptococcosis [Not Recovered/Not Resolved]

NARRATIVE: CASE EVENT DATE: 20241001
